FAERS Safety Report 8282878-7 (Version None)
Quarter: 2012Q2

REPORT INFORMATION
  Report Type: 
  Country: None (occurrence: None)
  Receive Date: 20120413
  Receipt Date: 20120404
  Transmission Date: 20120825
  Serious: Yes (Death, Hospitalization, Other)
  Sender: FDA-Public Use
  Company Number: US-ACTELION-A-US2012-62931

PATIENT

DRUGS (1)
  1. EPOPROSTENOL SODIUM [Suspect]
     Indication: PULMONARY ARTERIAL HYPERTENSION
     Dosage: 10 NG/KG, PER MIN
     Route: 042
     Dates: start: 20110831, end: 20120327

REACTIONS (5)
  - HYPOTENSION [None]
  - DEATH [None]
  - DISEASE PROGRESSION [None]
  - PULMONARY HYPERTENSION [None]
  - DRUG INTOLERANCE [None]
